FAERS Safety Report 20044271 (Version 2)
Quarter: 2021Q4

REPORT INFORMATION
  Report Type: Other
  Country: US (occurrence: US)
  Receive Date: 20211108
  Receipt Date: 20211209
  Transmission Date: 20220303
  Serious: Yes (Other)
  Sender: FDA-Public Use
  Company Number: US-NEUROCRINE BIOSCIENCES INC.-2021NBI06301

PATIENT

DRUGS (14)
  1. INGREZZA [Suspect]
     Active Substance: VALBENAZINE
     Indication: Tardive dyskinesia
     Dosage: 80 MILLIGRAM, QD
     Route: 048
     Dates: start: 20180928
  2. MIRTAZAPINE [Concomitant]
     Active Substance: MIRTAZAPINE
     Dosage: UNK
  3. ACETAMINOPHEN\HYDROCODONE [Concomitant]
     Active Substance: ACETAMINOPHEN\HYDROCODONE
     Indication: Pain
     Dosage: 7.5 MG - 325 MG THREE TIMES DAILY,AS NEEDED
     Route: 048
  4. ATORVASTATIN [Concomitant]
     Active Substance: ATORVASTATIN
     Dosage: 10 MILLIGRAM, QD
     Route: 048
  5. HYDROCHLOROTHIAZIDE\LOSARTAN [Concomitant]
     Active Substance: HYDROCHLOROTHIAZIDE\LOSARTAN
     Dosage: 50 MG - 12.5 MG DAILY
     Route: 048
  6. METFORMIN [Concomitant]
     Active Substance: METFORMIN HYDROCHLORIDE
     Dosage: 500 MILLIGRAM, QD
     Route: 048
  7. ATIVAN [Concomitant]
     Active Substance: LORAZEPAM
     Indication: Anxiety
     Dosage: 1 MILLIGRAM, BID, AS NEEDED
     Route: 048
  8. ADDERALL [Concomitant]
     Active Substance: AMPHETAMINE ASPARTATE\AMPHETAMINE SULFATE\DEXTROAMPHETAMINE SACCHARATE\DEXTROAMPHETAMINE SULFATE
     Dosage: 20 MILLIGRAM, QD
     Route: 048
  9. ASPIRIN [Concomitant]
     Active Substance: ASPIRIN
     Dosage: 81 MILLIGRAM, QD
     Route: 048
  10. MAGNESIUM OXIDE [Concomitant]
     Active Substance: MAGNESIUM OXIDE
     Dosage: 400 MILLIGRAM, QD
     Route: 048
  11. FISH OIL [Concomitant]
     Active Substance: FISH OIL
     Dosage: 1000 MILLIGRAM, QD
     Route: 048
  12. PRAZOSIN [Concomitant]
     Active Substance: PRAZOSIN
     Dosage: 2 MILLIGRAM, QHS
     Route: 048
  13. QUETIAPINE [Concomitant]
     Active Substance: QUETIAPINE
     Dosage: 400 MILLIGRAM, QHS
     Route: 048
  14. TRAZODONE [Concomitant]
     Active Substance: TRAZODONE HYDROCHLORIDE
     Dosage: 100 MILLIGRAM, QHS
     Route: 048

REACTIONS (9)
  - Foot operation [Unknown]
  - Intervertebral disc protrusion [Unknown]
  - Procedural pain [Unknown]
  - Pain [Unknown]
  - Chills [Unknown]
  - Pyrexia [Unknown]
  - Diarrhoea [Unknown]
  - Vaccination site pain [Unknown]
  - Nausea [Unknown]

NARRATIVE: CASE EVENT DATE: 20211026
